FAERS Safety Report 8864070 (Version 1)
Quarter: 2012Q4

REPORT INFORMATION
  Report Type: 
  Country: US (occurrence: US)
  Receive Date: 20121024
  Receipt Date: 20121024
  Transmission Date: 20130627
  Serious: No
  Sender: FDA-Public Use
  Company Number: US-AMGEN-USASP2011065504

PATIENT
  Age: 54 Year
  Sex: Female
  Weight: 68.03 kg

DRUGS (8)
  1. ENBREL [Suspect]
     Indication: PRODUCT USED FOR UNKNOWN INDICATION
     Dosage: 50 mg, 2 times/wk
     Route: 058
  2. MOTRIN IB [Concomitant]
     Dosage: 200 mg, UNK
     Route: 048
  3. LISINOPRIL [Concomitant]
     Dosage: 5 mg, UNK
     Route: 048
  4. ESTRACE [Concomitant]
     Dosage: 1 mg, UNK
     Route: 048
  5. ATENOLOL [Concomitant]
     Dosage: 25 mg, UNK
     Route: 048
  6. LIPITOR [Concomitant]
     Dosage: 10 mg, UNK
     Route: 048
  7. JANUVIA [Concomitant]
     Dosage: 100 mg, UNK
     Route: 048
  8. PRILOSEC                           /00661201/ [Concomitant]
     Dosage: 10 mg, UNK
     Route: 048

REACTIONS (1)
  - Sinusitis [Recovered/Resolved]
